FAERS Safety Report 6914546-5 (Version None)
Quarter: 2010Q3

REPORT INFORMATION
  Report Type: 
  Country: None (occurrence: None)
  Receive Date: 20100809
  Receipt Date: 20100802
  Transmission Date: 20110219
  Serious: Yes (Life-Threatening, Hospitalization, Other)
  Sender: FDA-Public Use
  Company Number: GB-ELI_LILLY_AND_COMPANY-GB201007001652

PATIENT
  Sex: Male
  Weight: 94.2 kg

DRUGS (5)
  1. BYETTA [Suspect]
     Indication: TYPE 2 DIABETES MELLITUS
     Dosage: 5 UG, UNKNOWN
     Route: 065
     Dates: start: 20090304, end: 20100616
  2. LANSOPRAZOLE [Concomitant]
     Indication: DYSPEPSIA
     Dosage: 30 MG, UNKNOWN
     Route: 048
  3. ASPIRIN [Concomitant]
     Dosage: 75 MG, UNKNOWN
     Route: 048
  4. CANDESARTAN [Concomitant]
     Indication: BLOOD PRESSURE INCREASED
     Dosage: 8 MG, UNKNOWN
     Route: 048
  5. METFORMIN HCL [Concomitant]
     Indication: TYPE 2 DIABETES MELLITUS
     Dosage: 1 G, UNKNOWN
     Route: 048

REACTIONS (3)
  - CHOLELITHIASIS [None]
  - PANCREATITIS ACUTE [None]
  - SEPSIS [None]
